FAERS Safety Report 19187832 (Version 3)
Quarter: 2021Q2

REPORT INFORMATION
  Report Type: Spontaneous
  Country: US (occurrence: US)
  Receive Date: 20210428
  Receipt Date: 20210601
  Transmission Date: 20210717
  Serious: Yes (Other)
  Sender: FDA-Public Use
  Company Number: US-JNJFOC-20210447933

PATIENT
  Age: 40 Year
  Sex: Male
  Weight: 68.1 kg

DRUGS (2)
  1. PREDNISONE. [Concomitant]
     Active Substance: PREDNISONE
     Route: 048
  2. REMICADE [Suspect]
     Active Substance: INFLIXIMAB
     Indication: CROHN^S DISEASE
     Route: 042

REACTIONS (3)
  - Drug specific antibody [Unknown]
  - Drug ineffective [Unknown]
  - Polyarthritis [Unknown]

NARRATIVE: CASE EVENT DATE: 20210423
